FAERS Safety Report 5481295-2 (Version None)
Quarter: 2007Q4

REPORT INFORMATION
  Report Type: 
  Country: None (occurrence: None)
  Receive Date: 20071010
  Receipt Date: 20070927
  Transmission Date: 20080405
  Serious: Yes (Other)
  Sender: FDA-Public Use
  Company Number: GB-ROCHE-512684

PATIENT
  Sex: Male
  Weight: 114 kg

DRUGS (7)
  1. XENICAL [Suspect]
     Indication: OBESITY
     Route: 065
     Dates: start: 20070706, end: 20070724
  2. INSULIN [Concomitant]
     Route: 058
  3. ASPIRIN [Concomitant]
     Route: 048
  4. METFORMIN HCL [Concomitant]
     Route: 048
  5. SIMVASTATIN [Concomitant]
     Route: 048
  6. RAMIPRIL [Concomitant]
     Indication: BLOOD PRESSURE
     Route: 048
  7. NOVORAPID [Concomitant]
     Route: 058

REACTIONS (1)
  - ILL-DEFINED DISORDER [None]
